FAERS Safety Report 17908967 (Version 1)
Quarter: 2020Q2

REPORT INFORMATION
  Report Type: Spontaneous
  Country: US (occurrence: US)
  Receive Date: 20200617
  Receipt Date: 20200617
  Transmission Date: 20200714
  Serious: Yes (Other)
  Sender: FDA-Public Use
  Company Number: US-GILEAD-2020-0472542

PATIENT
  Age: 85 Year
  Sex: Male

DRUGS (18)
  1. TOCILIZUMAB. [Concomitant]
     Active Substance: TOCILIZUMAB
     Dosage: 587.2 MG (IN 0.9% NACL)
     Route: 042
     Dates: start: 20190603, end: 20190603
  2. ZYLOPRIM [Concomitant]
     Active Substance: ALLOPURINOL
  3. OMNICEF [Concomitant]
     Active Substance: CEFDINIR
  4. NEURONTIN [Concomitant]
     Active Substance: GABAPENTIN
  5. YESCARTA [Suspect]
     Active Substance: AXICABTAGENE CILOLEUCEL
     Indication: DIFFUSE LARGE B-CELL LYMPHOMA STAGE IV
     Dosage: UNK
     Route: 065
     Dates: start: 20190528, end: 20200528
  6. BACTRIM [Concomitant]
     Active Substance: SULFAMETHOXAZOLE\TRIMETHOPRIM
  7. FLOMAX [Concomitant]
     Active Substance: TAMSULOSIN HYDROCHLORIDE
  8. DEXAMETHASONE. [Concomitant]
     Active Substance: DEXAMETHASONE
     Dosage: 10 MG, Q6H
     Route: 042
     Dates: start: 20190607, end: 20190607
  9. DEXAMETHASONE. [Concomitant]
     Active Substance: DEXAMETHASONE
     Dosage: 10 MG, QD
     Dates: start: 20190611, end: 20190612
  10. KEPPRA [Concomitant]
     Active Substance: LEVETIRACETAM
     Dosage: 500 MG, BID
     Dates: start: 20190527, end: 20190614
  11. TOCILIZUMAB. [Concomitant]
     Active Substance: TOCILIZUMAB
     Dosage: 629.6 MG (IN 0.9% NACL)
     Route: 042
     Dates: start: 20190607, end: 20190607
  12. DEXAMETHASONE. [Concomitant]
     Active Substance: DEXAMETHASONE
     Dosage: 10 MG, BID
     Route: 042
     Dates: start: 20190603, end: 20190605
  13. LIPITOR [Concomitant]
     Active Substance: ATORVASTATIN CALCIUM
  14. DEXAMETHASONE. [Concomitant]
     Active Substance: DEXAMETHASONE
     Dosage: 10 MG, EVERY 12 HOURS
     Route: 042
     Dates: start: 20190609, end: 20190611
  15. ZOVIRAX [Concomitant]
     Active Substance: ACYCLOVIR
  16. DEXAMETHASONE. [Concomitant]
     Active Substance: DEXAMETHASONE
     Dosage: 10 MG, Q8H
     Route: 042
     Dates: start: 20190608, end: 20190608
  17. LIDODERM [Concomitant]
     Active Substance: LIDOCAINE
  18. SENOKOT [Concomitant]
     Active Substance: SENNOSIDES

REACTIONS (1)
  - Neurotoxicity [Recovered/Resolved]

NARRATIVE: CASE EVENT DATE: 20200607
